FAERS Safety Report 4498770-X (Version None)
Quarter: 2004Q4

REPORT INFORMATION
  Report Type: 
  Country: None (occurrence: None)
  Receive Date: 20041108
  Receipt Date: 20041025
  Transmission Date: 20050328
  Serious: Yes (Death)
  Sender: FDA-Public Use
  Company Number: 2004BL007056

PATIENT
  Age: 44 Year
  Sex: Male

DRUGS (12)
  1. ALBUTEROL SULFATE [Suspect]
  2. FENTANYL [Suspect]
     Dosage: ORAL
     Route: 048
  3. CLONAZEPAM [Suspect]
     Dosage: ORAL
     Route: 048
  4. RISPERIDONE [Suspect]
     Dosage: ORAL
     Route: 048
  5. ZIDOVUDINE W/LAMIVUDINE [Suspect]
  6. PROGESTIN INJ [Suspect]
  7. UNSPECIFIED ANTICONVULSANT [Suspect]
  8. UNSPECIFIED ANGIOTENSIN RECEPTOR ANTAGONIST [Suspect]
  9. ZOLPIDEM [Suspect]
  10. CITALOPRAM [Suspect]
  11. VALDECOXIB [Suspect]
  12. GLYBURIDE [Concomitant]

REACTIONS (8)
  - BLOOD CREATINE PHOSPHOKINASE INCREASED [None]
  - BLOOD CREATININE INCREASED [None]
  - COMA [None]
  - DRUG ABUSER [None]
  - DRUG INEFFECTIVE [None]
  - HYPOGLYCAEMIA [None]
  - KUSSMAUL RESPIRATION [None]
  - MULTIPLE DRUG OVERDOSE [None]
